FAERS Safety Report 12717480 (Version 1)
Quarter: 2016Q3

REPORT INFORMATION
  Report Type: Spontaneous
  Country: US (occurrence: US)
  Receive Date: 20160906
  Receipt Date: 20160906
  Transmission Date: 20161109
  Serious: Yes (Other)
  Sender: FDA-Public Use
  Company Number: None

PATIENT
  Age: 45 Year
  Sex: Female
  Weight: 58.97 kg

DRUGS (1)
  1. VALACYCLOVIR [Suspect]
     Active Substance: VALACYCLOVIR HYDROCHLORIDE
     Indication: ORAL HERPES
     Dosage: 1 TABLET(S) ONCE A DAY TAKEN BY MOUTH
     Route: 048

REACTIONS (3)
  - Discomfort [None]
  - Incorrect dose administered [None]
  - Palpitations [None]

NARRATIVE: CASE EVENT DATE: 20160901
